FAERS Safety Report 10543286 (Version 1)
Quarter: 2014Q4

REPORT INFORMATION
  Report Type: Spontaneous
  Country: US (occurrence: None)
  Receive Date: 20141010
  Receipt Date: 20141010
  Transmission Date: 20150529
  Serious: Yes (Other)
  Sender: FDA-Public Use
  Company Number: 163-POMAL-14063317

PATIENT
  Age: 42 Year
  Sex: Female
  Weight: 70.76 kg

DRUGS (11)
  1. MS CONTIN(MORPHINE SULFATE) [Concomitant]
  2. SYNTHROID(LEVOTHYROXINE SODIUM) [Concomitant]
  3. VENTOLIN HFA(SALBUTAMOL SULFATE)(INHALANT) [Concomitant]
  4. POMALYST [Suspect]
     Active Substance: POMALIDOMIDE
     Indication: PLASMA CELL MYELOMA
     Dosage: 1.5 MG, 21 IN 28 D, PO
     Route: 048
     Dates: start: 20140604
  5. OMEPRAZOLE(OMEPRAZOLE) [Concomitant]
     Active Substance: OMEPRAZOLE
  6. CYMBALTA(DULOXETINE HYDROCHLORIDE) [Concomitant]
  7. DEXAMETHASONE(DEXMAETHSONE) [Concomitant]
  8. COLACE(DOCUSATE SODIUM) [Concomitant]
  9. DUCODYL(BISACODYL) [Concomitant]
  10. FLEXERIL(CYCLOBENZAPRIN HYDROCHLORIDE) [Concomitant]
  11. GABAPENTIN. [Concomitant]
     Active Substance: GABAPENTIN

REACTIONS (2)
  - Sleep disorder [None]
  - Chest discomfort [None]

NARRATIVE: CASE EVENT DATE: 20140617
